FAERS Safety Report 9063176 (Version 1)
Quarter: 2013Q1

REPORT INFORMATION
  Report Type: Report from Study
  Country: US (occurrence: US)
  Receive Date: 20130131
  Receipt Date: 20130131
  Transmission Date: 20140127
  Serious: No
  Sender: FDA-Public Use
  Company Number: US-ABBOTT-12P-163-1013540-00

PATIENT
  Age: 29 Year
  Sex: Female

DRUGS (4)
  1. HUMIRA [Suspect]
     Indication: CROHN^S DISEASE
     Dates: start: 20121012
  2. PREDNISONE [Concomitant]
     Indication: PRODUCT USED FOR UNKNOWN INDICATION
     Dosage: EVERY DAY (TAPERING DOWN)
  3. FOLIC ACID [Concomitant]
     Indication: ANAEMIA
     Dosage: DAILY
  4. COREG [Concomitant]
     Indication: HEART RATE INCREASED
     Dosage: EVERY DAY

REACTIONS (6)
  - Migraine [Unknown]
  - Urticaria [Recovered/Resolved]
  - Injection site urticaria [Unknown]
  - Urticaria [Unknown]
  - Headache [Unknown]
  - Neck pain [Not Recovered/Not Resolved]
